FAERS Safety Report 5651301-0 (Version None)
Quarter: 2008Q1

REPORT INFORMATION
  Report Type: 
  Country: None (occurrence: None)
  Receive Date: 20080131
  Receipt Date: 20071030
  Transmission Date: 20080703
  Serious: No
  Sender: FDA-Public Use
  Company Number: US200710007531

PATIENT
  Age: 36 Year
  Sex: Male

DRUGS (7)
  1. BYETTA [Suspect]
     Indication: DIABETES MELLITUS
     Dosage: 5 UG, 2/D, SUBCUTANEOUS; 10 UG, 2/D, SUBCUTANEOUS
     Route: 058
     Dates: start: 20070901, end: 20071001
  2. BYETTA [Suspect]
     Indication: DIABETES MELLITUS
     Dosage: 5 UG, 2/D, SUBCUTANEOUS; 10 UG, 2/D, SUBCUTANEOUS
     Route: 058
     Dates: start: 20071001
  3. EXENATIDE 5MCG PEN,DISPOSABLE DEVICE(EXENATIDE PEN (5MCG))PEN, DISPOSA [Concomitant]
  4. EXENATIDE 10MCG PEN,DISPOSABLE DEVICE (EXENATIDE PEN (10 MCG)0 PEN,DIS [Concomitant]
  5. LANTUS [Concomitant]
  6. GLUCOPHAGE /USA/ (METFORMIN HYDROCHLORIDE) [Concomitant]
  7. GLYBURIDE [Concomitant]

REACTIONS (3)
  - BLOOD GLUCOSE INCREASED [None]
  - DECREASED APPETITE [None]
  - WEIGHT DECREASED [None]
